FAERS Safety Report 15307255 (Version 1)
Quarter: 2018Q3

REPORT INFORMATION
  Report Type: Spontaneous
  Country: FR (occurrence: FR)
  Receive Date: 20180822
  Receipt Date: 20180822
  Transmission Date: 20181010
  Serious: Yes (Congenital Anomaly)
  Sender: FDA-Public Use
  Company Number: FR-PFIZER INC-2018331908

PATIENT
  Sex: Male

DRUGS (4)
  1. URBANYL [Suspect]
     Active Substance: CLOBAZAM
     Indication: ANXIETY
     Dosage: AS NEEDED (10 TO 20 MG PER DAY)
     Route: 064
     Dates: start: 20180502, end: 20180629
  2. LEVETIRACETAM. [Suspect]
     Active Substance: LEVETIRACETAM
     Indication: EPILEPSY
     Dosage: 3.5 G, 1X/DAY
     Route: 064
     Dates: start: 20171023, end: 20180706
  3. PAROXETINE. [Suspect]
     Active Substance: PAROXETINE
     Dosage: 20 MG, 1X/DAY
     Route: 064
     Dates: start: 20180502, end: 20180706
  4. SERESTA [Suspect]
     Active Substance: OXAZEPAM
     Indication: ANXIETY
     Dosage: 10 MG, 1X/DAY
     Route: 064
     Dates: start: 20180629, end: 20180706

REACTIONS (2)
  - Exposure during pregnancy [Unknown]
  - Hamartoma [Recovered/Resolved]

NARRATIVE: CASE EVENT DATE: 20171023
